FAERS Safety Report 5775592-0 (Version None)
Quarter: 2008Q2

REPORT INFORMATION
  Report Type: 
  Country: None (occurrence: None)
  Receive Date: 20080617
  Receipt Date: 20080605
  Transmission Date: 20081010
  Serious: Yes (Death, Other)
  Sender: FDA-Public Use
  Company Number: JP-WYE-H03653708

PATIENT
  Sex: Female

DRUGS (14)
  1. AMIODARONE HCL [Suspect]
     Indication: VENTRICULAR TACHYCARDIA
     Dosage: INITIAL RAPID INFUSION: 10 ML/MIN AT CONCENTRATION OF 1.25 MG/ML
     Route: 042
     Dates: start: 20071231, end: 20071231
  2. AMIODARONE HCL [Suspect]
     Dosage: LOADING INFUSION: 33 ML/HR AT CONCENTRATION OF 1.50 MG/ML
     Route: 042
     Dates: start: 20071231, end: 20071231
  3. AMIODARONE HCL [Suspect]
     Dosage: MAINTENANCE INFUSION: 17 ML/HR AT CONCENTRATION OF 1.50 MG/ML
     Route: 042
     Dates: start: 20071231, end: 20080101
  4. AMIODARONE HCL [Suspect]
     Dosage: CONTINUOUS TREATMENT: 17 ML/HR AT CONCENTRATION OF 1.50 MG/ML
     Route: 042
     Dates: start: 20080101, end: 20080128
  5. INOVAN [Concomitant]
     Indication: VENTRICULAR TACHYCARDIA
     Dosage: 300 MG
     Route: 042
     Dates: start: 20071229, end: 20071231
  6. INOVAN [Concomitant]
     Dosage: 700 MG
     Route: 042
     Dates: start: 20080101, end: 20080128
  7. ASPIRIN [Concomitant]
     Indication: VENTRICULAR TACHYCARDIA
     Dosage: 100 MG
     Route: 048
     Dates: start: 20071229, end: 20080127
  8. SULPERAZON [Concomitant]
     Route: 042
     Dates: start: 20080101, end: 20080118
  9. DOBUTREX [Concomitant]
     Indication: VENTRICULAR TACHYCARDIA
     Dosage: 200 MG
     Route: 042
     Dates: start: 20080101, end: 20080128
  10. MIDAZOLAM HCL [Concomitant]
     Indication: SEDATIVE THERAPY
     Dosage: 20-40 MG DAILY
     Route: 042
     Dates: start: 20080101, end: 20080128
  11. LASIX [Concomitant]
     Indication: VENTRICULAR TACHYCARDIA
     Dosage: 40 MG 2-3 TIMES DAILY
     Route: 042
     Dates: start: 20071229, end: 20080127
  12. FAMOTIDINE [Concomitant]
     Dosage: 40 MG 1-2 TIMES DAILY
     Route: 042
     Dates: start: 20071229, end: 20080116
  13. TICLOPIDINE HCL [Suspect]
     Indication: VENTRICULAR TACHYCARDIA
     Route: 048
     Dates: start: 20071230, end: 20080117
  14. SIGMART [Concomitant]
     Indication: VENTRICULAR TACHYCARDIA
     Dosage: 48 MG
     Route: 042
     Dates: start: 20071229, end: 20080128

REACTIONS (2)
  - HEPATIC FUNCTION ABNORMAL [None]
  - PNEUMONIA STAPHYLOCOCCAL [None]
